FAERS Safety Report 6023461-3 (Version None)
Quarter: 2008Q4

REPORT INFORMATION
  Report Type: 
  Country: None (occurrence: None)
  Receive Date: 20081230
  Receipt Date: 20081215
  Transmission Date: 20090506
  Serious: Yes (Death, Hospitalization)
  Sender: FDA-Public Use
  Company Number: US-CELGENEUS-163-21880-08090228

PATIENT
  Sex: Male

DRUGS (2)
  1. REVLIMID [Suspect]
     Indication: MULTIPLE MYELOMA
     Route: 048
     Dates: start: 20080519, end: 20080801
  2. REVLIMID [Suspect]
     Route: 048
     Dates: start: 20080903, end: 20081101

REACTIONS (4)
  - ASTHENIA [None]
  - DEATH [None]
  - FALL [None]
  - TACHYCARDIA [None]
